FAERS Safety Report 19768270 (Version 1)
Quarter: 2021Q3

REPORT INFORMATION
  Report Type: Other
  Country: US (occurrence: US)
  Receive Date: 20210830
  Receipt Date: 20210830
  Transmission Date: 20211014
  Serious: Yes (Hospitalization)
  Sender: FDA-Public Use
  Company Number: US-GENUS_LIFESCIENCES-USA-POI0580202100128

PATIENT
  Age: 25 Year
  Sex: Female

DRUGS (3)
  1. HYDROCODONE BITARTRATE AND ACETAMINOPHEN ORAL SOLUTION [Suspect]
     Active Substance: ACETAMINOPHEN\HYDROCODONE BITARTRATE
     Indication: PERIODONTAL DISEASE
     Dosage: HYDROCODONE 5MG WITH 300 MG ACETAMINOPHEN
     Dates: start: 2021, end: 2021
  2. ACETA (PARACETAMOL) [Suspect]
     Active Substance: ACETAMINOPHEN
     Dosage: 3000 TO 4000 MG QD (AFTER RUNNING OUT OF HYDROCODONE WITH ACETAMINOPHEN)
     Dates: start: 2021, end: 2021
  3. ACETA (PARACETAMOL) [Suspect]
     Active Substance: ACETAMINOPHEN
     Indication: PERIODONTAL DISEASE
     Dates: start: 2021, end: 2021

REACTIONS (1)
  - Toxicity to various agents [Recovered/Resolved]

NARRATIVE: CASE EVENT DATE: 2021
